FAERS Safety Report 19322781 (Version 1)
Quarter: 2021Q2

REPORT INFORMATION
  Report Type: Spontaneous
  Country: US (occurrence: US)
  Receive Date: 20210527
  Receipt Date: 20210527
  Transmission Date: 20210717
  Serious: No
  Sender: FDA-Public Use
  Company Number: US-B.I. PHARMACEUTICALS,INC./RIDGEFIELD-2021-BI-106190

PATIENT
  Age: 79 Year
  Sex: Male

DRUGS (1)
  1. TRADJENTA [Suspect]
     Active Substance: LINAGLIPTIN
     Indication: PRODUCT USED FOR UNKNOWN INDICATION
     Dosage: 5 MG DAILY
     Dates: start: 2019, end: 202101

REACTIONS (3)
  - Renal impairment [Not Recovered/Not Resolved]
  - Renal failure [Not Recovered/Not Resolved]
  - Renal impairment [Unknown]

NARRATIVE: CASE EVENT DATE: 202105
